FAERS Safety Report 7001123-3 (Version None)
Quarter: 2010Q3

REPORT INFORMATION
  Report Type: 
  Country: None (occurrence: None)
  Receive Date: 20100920
  Receipt Date: 20100909
  Transmission Date: 20110219
  Serious: Yes (Other)
  Sender: FDA-Public Use
  Company Number: PHHY2010BR59997

PATIENT
  Age: 82 Year
  Sex: Male

DRUGS (5)
  1. FORASEQ [Suspect]
     Indication: EMPHYSEMA
  2. MEMANTINE HCL [Concomitant]
     Indication: DEMENTIA ALZHEIMER'S TYPE
     Dosage: UNK
     Route: 048
  3. RIVOTRIL [Concomitant]
     Dosage: HALF TABLET AT NIGHT
  4. METAMUCIL-2 [Concomitant]
     Dosage: UNK
     Route: 048
  5. ANTIBIOTICS [Suspect]

REACTIONS (7)
  - BRONCHIAL SECRETION RETENTION [None]
  - COUGH [None]
  - DRUG DOSE OMISSION [None]
  - DYSPNOEA [None]
  - MEMORY IMPAIRMENT [None]
  - THYROID DISORDER [None]
  - URINARY TRACT INFECTION [None]
